FAERS Safety Report 8216868-7 (Version None)
Quarter: 2012Q1

REPORT INFORMATION
  Report Type: 
  Country: None (occurrence: None)
  Receive Date: 20120316
  Receipt Date: 20120307
  Transmission Date: 20120608
  Serious: Yes (Other)
  Sender: FDA-Public Use
  Company Number: US-ASTRAZENECA-2012SE15838

PATIENT
  Age: 80 Year
  Sex: Female
  Weight: 53.5 kg

DRUGS (4)
  1. NEXIUM [Suspect]
     Indication: ABDOMINAL PAIN UPPER
     Route: 048
     Dates: start: 20120305
  2. ASPIRIN [Concomitant]
  3. METOPROLOL SUCCINATE [Concomitant]
     Indication: BLOOD PRESSURE
  4. PREVACI [Concomitant]

REACTIONS (2)
  - HAEMOPTYSIS [None]
  - DIARRHOEA [None]
